FAERS Safety Report 5203755-1 (Version None)
Quarter: 2007Q1

REPORT INFORMATION
  Report Type: 
  Country: None (occurrence: None)
  Receive Date: 20070109
  Receipt Date: 20070109
  Transmission Date: 20070707
  Serious: Yes (Disabling, Other)
  Sender: FDA-Public Use
  Company Number: None

PATIENT
  Age: 66 Year
  Sex: Male
  Weight: 136.0791 kg

DRUGS (12)
  1. ALLOPURINOL [Suspect]
     Indication: GOUT
     Dosage: 1 TABLET DAILY ORALLY
     Route: 048
     Dates: start: 20061107, end: 20061227
  2. FELODIPINE [Suspect]
     Indication: BLOOD PRESSURE
     Dosage: 1 TABLET DAILY ORALLY
     Route: 048
     Dates: start: 20061107, end: 20061227
  3. KLONOPIN [Concomitant]
  4. ZESTRIL [Concomitant]
  5. ZOCOR [Concomitant]
  6. SINEMIT 25/100 [Concomitant]
  7. ZANAFLEX [Concomitant]
  8. VICODIN [Concomitant]
  9. TORSEMIDE [Concomitant]
  10. NEURONTIN [Concomitant]
  11. FLONASE [Concomitant]
  12. ALBUTEROL [Concomitant]

REACTIONS (3)
  - ABASIA [None]
  - JOINT SWELLING [None]
  - OEDEMA PERIPHERAL [None]
